FAERS Safety Report 9784542 (Version 2)
Quarter: 2014Q1

REPORT INFORMATION
  Report Type: Report from Study
  Country: US (occurrence: US)
  Receive Date: 20131226
  Receipt Date: 20140212
  Transmission Date: 20141002
  Serious: Yes (Other)
  Sender: FDA-Public Use
  Company Number: US-ABBVIE-13P-163-1183169-00

PATIENT
  Age: 35 Year
  Sex: Female

DRUGS (2)
  1. KALETRA [Suspect]
     Indication: ANTIRETROVIRAL THERAPY
     Dosage: NOT TAKING AT CONCEPTION
     Route: 048
     Dates: start: 20130712
  2. COMBIVIR [Suspect]
     Indication: ANTIRETROVIRAL THERAPY
     Dosage: TABLETS/CAPSULES (NOT TAKING AT CONCEPTION)
     Route: 048
     Dates: start: 20130712

REACTIONS (2)
  - Stillbirth [Unknown]
  - Amniotic cavity infection [Unknown]
